FAERS Safety Report 16664982 (Version 2)
Quarter: 2025Q2

REPORT INFORMATION
  Report Type: Spontaneous
  Country: DE (occurrence: DE)
  Receive Date: 20190803
  Receipt Date: 20250426
  Transmission Date: 20250717
  Serious: Yes (Other)
  Sender: AUROBINDO
  Company Number: DE-AUROBINDO-AUR-APL-2019-045016

PATIENT
  Age: 18 Year
  Sex: Female

DRUGS (12)
  1. TOPIRAMATE [Interacting]
     Active Substance: TOPIRAMATE
     Indication: Epilepsy
     Route: 065
  2. TOPIRAMATE [Interacting]
     Active Substance: TOPIRAMATE
     Indication: Lafora^s myoclonic epilepsy
     Route: 048
  3. TOPIRAMATE [Interacting]
     Active Substance: TOPIRAMATE
     Indication: Myoclonic epilepsy
  4. PERAMPANEL [Interacting]
     Active Substance: PERAMPANEL
     Indication: Epilepsy
     Route: 065
  5. PERAMPANEL [Interacting]
     Active Substance: PERAMPANEL
     Indication: Lafora^s myoclonic epilepsy
  6. PERAMPANEL [Interacting]
     Active Substance: PERAMPANEL
     Indication: Myoclonic epilepsy
  7. VALPROATE [Interacting]
     Active Substance: VALPROIC ACID
     Indication: Epilepsy
     Route: 065
  8. VALPROATE [Interacting]
     Active Substance: VALPROIC ACID
     Indication: Lafora^s myoclonic epilepsy
  9. VALPROATE [Interacting]
     Active Substance: VALPROIC ACID
     Indication: Myoclonic epilepsy
  10. CLOBAZAM [Interacting]
     Active Substance: CLOBAZAM
     Indication: Epilepsy
     Route: 065
  11. CLOBAZAM [Interacting]
     Active Substance: CLOBAZAM
     Indication: Myoclonic epilepsy
  12. CLOBAZAM [Interacting]
     Active Substance: CLOBAZAM
     Indication: Lafora^s myoclonic epilepsy

REACTIONS (4)
  - Seizure [Unknown]
  - Drug interaction [Unknown]
  - Off label use [Unknown]
  - Product use in unapproved indication [Unknown]
